FAERS Safety Report 17278809 (Version 4)
Quarter: 2020Q3

REPORT INFORMATION
  Report Type: Report from Study
  Country: US (occurrence: US)
  Receive Date: 20200116
  Receipt Date: 20200709
  Transmission Date: 20201102
  Serious: No
  Sender: FDA-Public Use
  Company Number: NVSC2020US009187

PATIENT
  Age: 78 Year
  Sex: Male

DRUGS (3)
  1. ENTRESTO [Suspect]
     Active Substance: SACUBITRIL\VALSARTAN
     Dosage: 1 DF (SACUBITRIL 49MG,VALSARTAN51 MG), BID
     Route: 048
  2. ENTRESTO [Suspect]
     Active Substance: SACUBITRIL\VALSARTAN
     Indication: CARDIAC FAILURE
     Dosage: 1 DF (SACUBITRIL 49MG,VALSARTAN51 MG), BID
     Route: 048
  3. ENTRESTO [Suspect]
     Active Substance: SACUBITRIL\VALSARTAN
     Dosage: 49.51 MG, ONCE2SDO
     Route: 048

REACTIONS (5)
  - Cough [Recovered/Resolved]
  - Fall [Recovering/Resolving]
  - Eye contusion [Recovering/Resolving]
  - Dyspnoea [Recovering/Resolving]
  - Eye irritation [Unknown]

NARRATIVE: CASE EVENT DATE: 202006
